FAERS Safety Report 17985873 (Version 3)
Quarter: 2020Q4

REPORT INFORMATION
  Report Type: Spontaneous
  Country: US (occurrence: US)
  Receive Date: 20200707
  Receipt Date: 20201215
  Transmission Date: 20210113
  Serious: Yes (Hospitalization, Other)
  Sender: FDA-Public Use
  Company Number: US-AUROBINDO-AUR-APL-2020-032065

PATIENT
  Age: 2 Year
  Sex: Female
  Weight: 18.14 kg

DRUGS (1)
  1. OLANZAPINE TABLETS 5MG [Suspect]
     Active Substance: OLANZAPINE
     Indication: PRODUCT USED FOR UNKNOWN INDICATION
     Dosage: UNK
     Route: 065

REACTIONS (4)
  - Accidental overdose [Unknown]
  - Accidental exposure to product by child [Unknown]
  - Loss of consciousness [Unknown]
  - Product container issue [Unknown]
